FAERS Safety Report 9968397 (Version 1)
Quarter: 2014Q1

REPORT INFORMATION
  Report Type: Report from Study
  Country: US (occurrence: US)
  Receive Date: 20140306
  Receipt Date: 20140306
  Transmission Date: 20141002
  Serious: No
  Sender: FDA-Public Use
  Company Number: US-ABBVIE-13P-163-1144600-00

PATIENT
  Age: 22 Year
  Sex: Female

DRUGS (5)
  1. HUMIRA [Suspect]
     Indication: CROHN^S DISEASE
     Dates: start: 201001
  2. HUMIRA [Suspect]
     Dosage: 2-80MG DOSES DAY 1
     Dates: start: 201304
  3. HUMIRA [Suspect]
  4. PREDNISONE [Suspect]
     Indication: CROHN^S DISEASE
     Dates: start: 201304, end: 201307
  5. LIALDA [Concomitant]
     Indication: CROHN^S DISEASE

REACTIONS (8)
  - Pain [Not Recovered/Not Resolved]
  - Irritability [Unknown]
  - Bedridden [Unknown]
  - Fatigue [Unknown]
  - Dyspepsia [Unknown]
  - Pyrexia [Unknown]
  - Malaise [Not Recovered/Not Resolved]
  - Paraesthesia [Not Recovered/Not Resolved]
